FAERS Safety Report 9739513 (Version 3)
Quarter: 2014Q3

REPORT INFORMATION
  Report Type: Spontaneous
  Country: US (occurrence: US)
  Receive Date: 20131209
  Receipt Date: 20140806
  Transmission Date: 20150326
  Serious: Yes (Hospitalization, Other)
  Sender: FDA-Public Use
  Company Number: US-009507513-1312USA001361

PATIENT
  Sex: Female

DRUGS (1)
  1. NUVARING [Suspect]
     Active Substance: ETHINYL ESTRADIOL\ETONOGESTREL
     Dosage: 1 RING ONCE/MONTH, PRN
     Route: 067
     Dates: start: 200904, end: 20110408

REACTIONS (12)
  - Meningitis [Unknown]
  - Epidural blood patch [Unknown]
  - Leukocytosis [Unknown]
  - Hypokalaemia [Unknown]
  - Back pain [Recovering/Resolving]
  - Superior sagittal sinus thrombosis [Recovering/Resolving]
  - Constipation [Unknown]
  - Antiphospholipid syndrome [Unknown]
  - Intervertebral disc displacement [Unknown]
  - Transverse sinus thrombosis [Recovering/Resolving]
  - Coagulation test abnormal [Unknown]
  - Headache [Recovering/Resolving]

NARRATIVE: CASE EVENT DATE: 20110106
